FAERS Safety Report 6396811-6 (Version None)
Quarter: 2009Q4

REPORT INFORMATION
  Report Type: 
  Country: None (occurrence: None)
  Receive Date: 20091012
  Receipt Date: 20090731
  Transmission Date: 20100525
  Serious: Yes (Hospitalization)
  Sender: FDA-Public Use
  Company Number: US-ASTRAZENECA-2009SE06472

PATIENT
  Age: 73 Year
  Sex: Female
  Weight: 77.1 kg

DRUGS (5)
  1. SYMBICORT [Suspect]
     Indication: ASTHMA
     Dosage: 160MCG  TWO PUFFS TWICE
     Route: 055
  2. SYMBICORT [Suspect]
     Dosage: 720 MCG TOTAL DAILY DOSE
     Route: 055
  3. LISINOPRIL [Concomitant]
  4. LOVASTATIN [Concomitant]
  5. FOSAMAX [Concomitant]

REACTIONS (2)
  - BRONCHITIS [None]
  - RASH PRURITIC [None]
